FAERS Safety Report 10612177 (Version 2)
Quarter: 2015Q1

REPORT INFORMATION
  Report Type: Spontaneous
  Country: CA (occurrence: CA)
  Receive Date: 20141127
  Receipt Date: 20150212
  Transmission Date: 20150720
  Serious: Yes (Death, Hospitalization)
  Sender: FDA-Public Use
  Company Number: CA-ROCHE-1496815

PATIENT
  Age: 68 Year
  Sex: Male
  Weight: 77 kg

DRUGS (9)
  1. SENOKOT [Concomitant]
     Active Substance: SENNOSIDES
  2. SERTRALINE [Concomitant]
     Active Substance: SERTRALINE HYDROCHLORIDE
     Route: 065
  3. SUBLINOX [Concomitant]
     Active Substance: ZOLPIDEM TARTRATE
     Route: 065
  4. LANSOPRAZOLE. [Concomitant]
     Active Substance: LANSOPRAZOLE
     Route: 065
  5. LIPITOR [Concomitant]
     Active Substance: ATORVASTATIN CALCIUM
     Route: 065
  6. RITUXAN [Suspect]
     Active Substance: RITUXIMAB
     Indication: NON-HODGKIN^S LYMPHOMA
     Dosage: THERAPY DURATION: 197 DAYS
     Route: 048
  7. SOFLAX (CANADA) [Concomitant]
  8. COVERSYL [Concomitant]
     Active Substance: PERINDOPRIL
     Route: 065
  9. HYDROMORPHONE [Suspect]
     Active Substance: HYDROMORPHONE
     Indication: PAIN
     Route: 065

REACTIONS (8)
  - Back pain [Fatal]
  - Alanine aminotransferase increased [Fatal]
  - Malignant neoplasm progression [Fatal]
  - Non-Hodgkin^s lymphoma [Fatal]
  - Abdominal pain [Fatal]
  - Constipation [Fatal]
  - Blood alkaline phosphatase increased [Fatal]
  - Aspartate aminotransferase increased [Fatal]
